FAERS Safety Report 9721763 (Version 1)
Quarter: 2013Q4

REPORT INFORMATION
  Report Type: Report from Study
  Country: US (occurrence: US)
  Receive Date: 20131201
  Receipt Date: 20131201
  Transmission Date: 20140711
  Serious: No
  Sender: FDA-Public Use
  Company Number: US-ABBVIE-13P-163-1159991-00

PATIENT
  Age: 30 Year
  Sex: Male

DRUGS (5)
  1. ANDROGEL [Suspect]
     Indication: PRODUCT USED FOR UNKNOWN INDICATION
     Dosage: 2 DEPRESSION TO 1 SHOULDER + 1 DEPRESSION TO OTHER SHOULDER DAILY
     Route: 061
     Dates: start: 20120523, end: 20130806
  2. ANDROGEL [Suspect]
     Dosage: 2 PUMPS DAILY
     Route: 061
     Dates: start: 20130806, end: 201310
  3. ANDROGEL [Suspect]
     Dosage: SEE NARRATIVE
     Route: 061
     Dates: start: 201310
  4. CORTEF [Concomitant]
     Indication: PRODUCT USED FOR UNKNOWN INDICATION
  5. LEVOTHYROXINE [Concomitant]
     Indication: PRODUCT USED FOR UNKNOWN INDICATION

REACTIONS (1)
  - Incorrect dose administered [Recovered/Resolved]
